FAERS Safety Report 8210049-9 (Version None)
Quarter: 2012Q1

REPORT INFORMATION
  Report Type: 
  Country: None (occurrence: None)
  Receive Date: 20120314
  Receipt Date: 20110518
  Transmission Date: 20120608
  Serious: No
  Sender: FDA-Public Use
  Company Number: US-ASTRAZENECA-2011SE30617

PATIENT
  Age: 60 Year
  Sex: Female

DRUGS (3)
  1. METOPROLOL SUCCINATE [Suspect]
     Indication: HYPERTENSION
     Route: 048
     Dates: start: 19990101, end: 20010101
  2. METOPROLOL SUCCINATE [Suspect]
     Route: 048
     Dates: start: 20010101, end: 20010101
  3. METOPROLOL SUCCINATE [Suspect]
     Route: 048
     Dates: start: 20010101

REACTIONS (6)
  - BLOOD PRESSURE INCREASED [None]
  - ARTHROPOD STING [None]
  - URINARY TRACT INFECTION [None]
  - MEDICATION RESIDUE [None]
  - MALAISE [None]
  - BLOOD PRESSURE ABNORMAL [None]
